FAERS Safety Report 8220798-4 (Version None)
Quarter: 2012Q1

REPORT INFORMATION
  Report Type: 
  Country: None (occurrence: None)
  Receive Date: 20120307
  Receipt Date: 20091229
  Transmission Date: 20120608
  Serious: No
  Sender: FDA-Public Use
  Company Number: PHEH2009US18740

PATIENT
  Age: 68 Year
  Sex: Male

DRUGS (16)
  1. CASTOR OIL (RICINUS COMMUNIS OIL) [Concomitant]
  2. TEA, GREEN (CAMELLIA SINENSIS, TEA, GREEN) [Concomitant]
  3. HYDROCORTISONE [Suspect]
  4. CRESTOR [Concomitant]
  5. VITAMIN E [Concomitant]
  6. GINSENG [Concomitant]
  7. ASCORBIC ACID [Suspect]
  8. ATENOLOL [Concomitant]
  9. CALCIUM MAGNESIUM ZINC [Concomitant]
  10. VITAMIN D [Concomitant]
  11. GARLIC (ALLIUM SATIVUM) [Concomitant]
  12. FLUDROCORTISONE ACETATE [Concomitant]
  13. LYCOPENE [Concomitant]
  14. AFINITOR [Suspect]
     Dosage: 10 MG, QD : HALF TABLET, QOD
     Dates: start: 20090101
  15. AFINITOR [Suspect]
     Dosage: 10 MG, QD : HALF TABLET, QOD
     Dates: start: 20091224
  16. FLAXSEED OIL (LINUM USITATISSIMUM SEED OIL) [Concomitant]

REACTIONS (6)
  - STOMATITIS [None]
  - POLLAKIURIA [None]
  - GASTROINTESTINAL ULCER [None]
  - DIARRHOEA HAEMORRHAGIC [None]
  - BLOOD SODIUM DECREASED [None]
  - BLOOD CHOLESTEROL INCREASED [None]
